FAERS Safety Report 21266991 (Version 1)
Quarter: 2022Q3

REPORT INFORMATION
  Report Type: Spontaneous
  Country: US (occurrence: None)
  Receive Date: 20220826
  Receipt Date: 20220826
  Transmission Date: 20221027
  Serious: Yes (Hospitalization)
  Sender: FDA-Public Use
  Company Number: None

PATIENT
  Age: 60 Year
  Sex: Female

DRUGS (16)
  1. AMBRISENTAN [Suspect]
     Active Substance: AMBRISENTAN
     Indication: Pulmonary arterial hypertension
     Dosage: FREQUENCY : DAILY;?
     Route: 048
     Dates: start: 20210301
  2. VELETRI [Concomitant]
     Active Substance: EPOPROSTENOL
  3. ONDANSETRON [Concomitant]
     Active Substance: ONDANSETRON
  4. NORCO [Concomitant]
     Active Substance: ACETAMINOPHEN\HYDROCODONE BITARTRATE
  5. VENTAVIS [Concomitant]
  6. MIDODRINE [Concomitant]
     Active Substance: MIDODRINE
  7. LASIX [Concomitant]
     Active Substance: FUROSEMIDE
  8. BUPROPION [Concomitant]
     Active Substance: BUPROPION
  9. FLONASE [Concomitant]
     Active Substance: FLUTICASONE PROPIONATE
  10. Omeparzole [Concomitant]
  11. Gabpentin [Concomitant]
  12. MVI-minerals [Concomitant]
  13. SODIUM BICARBONATE [Concomitant]
     Active Substance: SODIUM BICARBONATE
  14. Lidex top oint [Concomitant]
  15. TAC top cream [Concomitant]
  16. Aclovate top cream [Concomitant]

REACTIONS (2)
  - Dyspnoea [None]
  - Oedema [None]

NARRATIVE: CASE EVENT DATE: 20220808
